FAERS Safety Report 18335907 (Version 4)
Quarter: 2023Q2

REPORT INFORMATION
  Report Type: Spontaneous
  Country: US (occurrence: US)
  Receive Date: 20201001
  Receipt Date: 20230622
  Transmission Date: 20230722
  Serious: Yes (Hospitalization, Other)
  Sender: FDA-Public Use
  Company Number: US-PFIZER INC-2020375163

PATIENT
  Age: 76 Year
  Sex: Male
  Weight: 82.55 kg

DRUGS (13)
  1. INLYTA [Suspect]
     Active Substance: AXITINIB
     Indication: Clear cell renal cell carcinoma
     Dosage: EVERY TWELVE HOURS WITH A FULL GLASS OF WATER
     Route: 048
     Dates: start: 20200922
  2. INLYTA [Suspect]
     Active Substance: AXITINIB
     Dosage: 1 MG
     Dates: start: 20210121, end: 20210204
  3. INLYTA [Suspect]
     Active Substance: AXITINIB
     Dosage: 3 PILLS OF 1 MG, TWICE A DAY, FOR A TOTAL OF 6MG A DAY
     Route: 048
     Dates: start: 2021
  4. KEYTRUDA [Suspect]
     Active Substance: PEMBROLIZUMAB
     Indication: Clear cell renal cell carcinoma
     Dosage: 200 MG, EVERY 3 WEEKS
     Route: 042
     Dates: start: 20200922
  5. ASPIRIN [Concomitant]
     Active Substance: ASPIRIN
     Indication: Anticoagulant therapy
     Dosage: 81 MG, 1X/DAY
     Route: 048
  6. ASPIRIN [Concomitant]
     Active Substance: ASPIRIN
     Indication: Stent placement
  7. ASPIRIN [Concomitant]
     Active Substance: ASPIRIN
     Indication: Myocardial infarction
  8. ATORVASTATIN [Concomitant]
     Active Substance: ATORVASTATIN
     Indication: Stent placement
     Dosage: 40 MG, ALTERNATE DAY
     Route: 048
  9. BRILINTA [Concomitant]
     Active Substance: TICAGRELOR
     Indication: Stent placement
     Dosage: 90 MG, 2X/DAY
     Route: 048
     Dates: start: 20201103
  10. CLOPIDOGREL [Concomitant]
     Active Substance: CLOPIDOGREL BISULFATE
     Indication: Anticoagulant therapy
     Dosage: 75 MG, 1X/DAY
     Route: 048
  11. CLOPIDOGREL [Concomitant]
     Active Substance: CLOPIDOGREL BISULFATE
     Indication: Cardiac disorder
  12. EZETIMIBE [Concomitant]
     Active Substance: EZETIMIBE
     Indication: Stent placement
     Dosage: 10 MG, 1X/DAY
     Route: 048
  13. LISINOPRIL [Concomitant]
     Active Substance: LISINOPRIL
     Indication: Blood pressure abnormal
     Dosage: 5 MG, AS NEEDED
     Route: 048

REACTIONS (12)
  - Acute hepatic failure [Recovered/Resolved]
  - Myocardial infarction [Recovered/Resolved]
  - Blood pressure increased [Unknown]
  - Hepatic enzyme increased [Recovered/Resolved]
  - Gout [Not Recovered/Not Resolved]
  - Malaise [Unknown]
  - Asthenia [Unknown]
  - Fatigue [Unknown]
  - Decreased appetite [Unknown]
  - Dysgeusia [Unknown]
  - Dysphonia [Unknown]
  - Neoplasm progression [Unknown]

NARRATIVE: CASE EVENT DATE: 20200927
